FAERS Safety Report 13624886 (Version 1)
Quarter: 2017Q2

REPORT INFORMATION
  Report Type: Report from Study
  Country: FR (occurrence: FR)
  Receive Date: 20170608
  Receipt Date: 20170608
  Transmission Date: 20170830
  Serious: Yes (Other)
  Sender: FDA-Public Use
  Company Number: FR-ROCHE-1941347

PATIENT

DRUGS (2)
  1. TEMOZOLOMIDE. [Suspect]
     Active Substance: TEMOZOLOMIDE
     Indication: GLIOBLASTOMA
     Route: 065
  2. BEVACIZUMAB [Suspect]
     Active Substance: BEVACIZUMAB
     Indication: GLIOBLASTOMA
     Route: 042

REACTIONS (14)
  - Thrombocytopenia [Unknown]
  - Neutropenia [Unknown]
  - Vomiting [Unknown]
  - Off label use [Unknown]
  - Gastrointestinal haemorrhage [Unknown]
  - Hypertension [Unknown]
  - Headache [Unknown]
  - Cholestasis [Unknown]
  - Epistaxis [Unknown]
  - Embolism [Unknown]
  - Proteinuria [Unknown]
  - Diverticulitis [Unknown]
  - Nausea [Unknown]
  - Mucosal inflammation [Unknown]
